FAERS Safety Report 18564400 (Version 1)
Quarter: 2020Q4

REPORT INFORMATION
  Report Type: Spontaneous
  Country: US (occurrence: US)
  Receive Date: 20201201
  Receipt Date: 20201201
  Transmission Date: 20210114
  Serious: Yes (Hospitalization)
  Sender: FDA-Public Use
  Company Number: US-MYLANLABS-2020M1097703

PATIENT
  Age: 53 Year
  Sex: Female

DRUGS (8)
  1. GLYCERYL TRINITRATE [Suspect]
     Active Substance: NITROGLYCERIN
     Indication: ACUTE CORONARY SYNDROME
     Route: 060
  2. HEPARIN [Suspect]
     Active Substance: HEPARIN SODIUM
     Indication: ACUTE CORONARY SYNDROME
     Dosage: UNK
     Route: 040
  3. ASPIRIN                            /00002701/ [Suspect]
     Active Substance: ASPIRIN
     Indication: ACUTE CORONARY SYNDROME
     Dosage: 325 MILLIGRAM
     Route: 065
  4. COLCHICINE. [Concomitant]
     Active Substance: COLCHICINE
     Indication: MYOCARDITIS
     Route: 065
  5. NAPROXEN. [Concomitant]
     Active Substance: NAPROXEN
     Indication: MYOCARDITIS
     Route: 065
  6. MORPHINE [Concomitant]
     Active Substance: MORPHINE
     Indication: ACUTE CORONARY SYNDROME
     Route: 042
  7. NAFCILLIN [Suspect]
     Active Substance: NAFCILLIN SODIUM
     Indication: ENDOCARDITIS
     Route: 042
  8. HEPARIN [Suspect]
     Active Substance: HEPARIN SODIUM
     Dosage: ROA: IV INFUSION

REACTIONS (4)
  - Drug eruption [Recovered/Resolved]
  - Haemorrhagic stroke [Recovered/Resolved]
  - Hemianopia homonymous [Recovered/Resolved]
  - Drug ineffective [Unknown]
